FAERS Safety Report 8501303 (Version 2)
Quarter: 2012Q4

REPORT INFORMATION
  Report Type: 
  Country: US (occurrence: US)
  Receive Date: 20120410
  Receipt Date: 20120928
  Transmission Date: 20130627
  Serious: Yes (Other)
  Sender: FDA-Public Use
  Company Number: US-BAYER-2012-032346

PATIENT
  Age: 30 Year
  Sex: Female

DRUGS (10)
  1. YAZ [Suspect]
     Indication: ACNE
     Dosage: UNK
     Dates: start: 2005, end: 2008
  2. YAZ [Suspect]
     Indication: PREMENSTRUAL SYNDROME
  3. YAZ [Suspect]
     Indication: PREMENSTRUAL SYNDROME
  4. ALBUTEROL [Concomitant]
     Dosage: 90 mcg/ ACT, 2 puffs every 4 hours
  5. FEXOFENADINE [Concomitant]
     Dosage: 180 mg, Once daily
     Route: 048
  6. MULTIVITAMIN [Concomitant]
     Dosage: 1 tablet daily
     Route: 048
  7. SERTRALINE [Concomitant]
     Indication: ANXIETY
     Dosage: 100 mg, daily
     Route: 048
  8. SERTRALINE [Concomitant]
     Indication: DEPRESSION
  9. OMEPRAZOLE [Concomitant]
     Indication: DYSPEPSIA
     Dosage: UNK UNK, BID
  10. NASONEX [Concomitant]
     Dosage: 50 mcg/ ACT, 2 squirt twice daily
     Route: 045

REACTIONS (4)
  - Cholecystectomy [None]
  - Cholelithiasis [None]
  - Pain [None]
  - Injury [None]
